FAERS Safety Report 18656276 (Version 1)
Quarter: 2020Q4

REPORT INFORMATION
  Report Type: Report from Study
  Country: None (occurrence: CO)
  Receive Date: 20201223
  Receipt Date: 20201223
  Transmission Date: 20210114
  Serious: Yes (Other)
  Sender: FDA-Public Use
  Company Number: CO-ABBVIE-20K-036-3704555-00

PATIENT
  Age: 53 Year
  Sex: Female
  Weight: 58 kg

DRUGS (4)
  1. CALCIUM [Concomitant]
     Active Substance: CALCIUM
     Indication: UVEITIS
     Route: 048
     Dates: start: 2019
  2. METHOTREXATE. [Concomitant]
     Active Substance: METHOTREXATE
     Indication: UVEITIS
     Route: 048
     Dates: start: 2019
  3. HUMIRA [Suspect]
     Active Substance: ADALIMUMAB
     Indication: UVEITIS
     Route: 058
     Dates: start: 20190704
  4. FOLIC ACID. [Concomitant]
     Active Substance: FOLIC ACID
     Indication: UVEITIS
     Route: 048
     Dates: start: 2019

REACTIONS (1)
  - Corneal disorder [Recovered/Resolved]

NARRATIVE: CASE EVENT DATE: 20201201
